FAERS Safety Report 6176581-7 (Version None)
Quarter: 2009Q2

REPORT INFORMATION
  Report Type: 
  Country: None (occurrence: None)
  Receive Date: 20090501
  Receipt Date: 20090424
  Transmission Date: 20091009
  Serious: Yes (Hospitalization)
  Sender: FDA-Public Use
  Company Number: IN-ELI_LILLY_AND_COMPANY-IN200904005957

PATIENT
  Sex: Female

DRUGS (3)
  1. BYETTA [Suspect]
     Indication: TYPE 2 DIABETES MELLITUS
     Dosage: 5 UG, DAILY (1/D)
     Route: 058
     Dates: start: 20090407, end: 20090401
  2. BYETTA [Suspect]
     Dosage: 5 UG, DAILY (1/D)
     Route: 058
     Dates: start: 20090401, end: 20090424
  3. ORAL ANTIDIABETICS [Concomitant]
     Dosage: UNK, UNKNOWN
     Route: 065

REACTIONS (3)
  - BLOOD GLUCOSE INCREASED [None]
  - NAUSEA [None]
  - VOMITING [None]
